FAERS Safety Report 20894027 (Version 4)
Quarter: 2023Q1

REPORT INFORMATION
  Report Type: Report from Study
  Country: IT (occurrence: IT)
  Receive Date: 20220531
  Receipt Date: 20230131
  Transmission Date: 20230418
  Serious: Yes (Hospitalization)
  Sender: FDA-Public Use
  Company Number: IT-EXELIXIS-XL18422052423

PATIENT

DRUGS (30)
  1. CABOZANTINIB [Suspect]
     Active Substance: CABOZANTINIB
     Indication: Metastatic renal cell carcinoma
     Dosage: 60 MG, QD
     Route: 048
     Dates: start: 20210803
  2. CABOZANTINIB [Suspect]
     Active Substance: CABOZANTINIB
     Dosage: 40 MG
     Route: 048
  3. ATEZOLIZUMAB [Suspect]
     Active Substance: ATEZOLIZUMAB
     Indication: Metastatic renal cell carcinoma
     Dosage: 1200 MG, Q3WEEKS
     Route: 041
     Dates: start: 20210803
  4. TAMSULOSIN HYDROCHLORIDE [Concomitant]
     Active Substance: TAMSULOSIN HYDROCHLORIDE
     Indication: Benign prostatic hyperplasia
     Dosage: 0.4 MG, QD
     Route: 048
     Dates: start: 202009
  5. DUTASTERIDE [Concomitant]
     Active Substance: DUTASTERIDE
     Dosage: 0.5 MG, QD
     Route: 048
     Dates: start: 202008
  6. FLECAINIDE ACETATE [Concomitant]
     Active Substance: FLECAINIDE ACETATE
     Indication: Arrhythmia
     Dosage: 100 MG, QD
     Route: 048
     Dates: start: 20211220
  7. DICLOFENAC SODIUM [Concomitant]
     Active Substance: DICLOFENAC SODIUM
     Indication: Palmar-plantar erythrodysaesthesia syndrome
     Dosage: 2 UNIT NOT REPORTED, BID
     Route: 061
     Dates: start: 20211027
  8. BETAMETHASONE DIPROPIONATE [Concomitant]
     Active Substance: BETAMETHASONE DIPROPIONATE
     Indication: Palmar-plantar erythrodysaesthesia syndrome
     Dosage: 1 UNIT NOT REPORTED, BID
     Route: 061
     Dates: start: 20211027
  9. VALSARTAN [Concomitant]
     Active Substance: VALSARTAN
     Indication: Hypertension
     Dosage: 80 MG, QD
     Route: 048
     Dates: start: 2011, end: 20210904
  10. VALSARTAN [Concomitant]
     Active Substance: VALSARTAN
     Dosage: 80 MG, QD
     Route: 048
     Dates: start: 20210908, end: 20211101
  11. VALSARTAN [Concomitant]
     Active Substance: VALSARTAN
     Dosage: 160 MG, QD
     Route: 048
     Dates: start: 20211102
  12. LEVETIRACETAM [Concomitant]
     Active Substance: LEVETIRACETAM
     Indication: Prophylaxis
     Dosage: 500 MG, 2 IN 1 MIN
     Route: 048
     Dates: start: 20210701
  13. FLUCONAZOLE [Concomitant]
     Active Substance: FLUCONAZOLE
     Indication: Candida infection
     Dosage: 10 MG, BID
     Route: 048
     Dates: start: 20211116
  14. FLUCONAZOLE [Concomitant]
     Active Substance: FLUCONAZOLE
     Dosage: 100 MG, QD
     Route: 048
     Dates: start: 20211229
  15. CANAGLIFLOZIN [Concomitant]
     Active Substance: CANAGLIFLOZIN
     Indication: Diabetes mellitus
     Dosage: 100 MG, BID
     Route: 048
     Dates: start: 20210825
  16. APIXABAN [Concomitant]
     Active Substance: APIXABAN
     Indication: Prophylaxis
     Dosage: 2.5 MG, 2 IN 1 SEC
     Route: 048
     Dates: start: 20211220
  17. ESCITALOPRAM [Concomitant]
     Active Substance: ESCITALOPRAM OXALATE
     Indication: Depression
     Dosage: 5 MG, QD
     Route: 048
     Dates: start: 20220426, end: 20220504
  18. ESCITALOPRAM [Concomitant]
     Active Substance: ESCITALOPRAM OXALATE
     Dosage: 10 MG, QD
     Route: 048
     Dates: start: 20220505
  19. MEGESTROL ACETATE [Concomitant]
     Active Substance: MEGESTROL ACETATE
     Indication: Decreased appetite
     Dosage: 160 MG, BID
     Route: 048
     Dates: start: 20220505
  20. AMIODARONE HYDROCHLORIDE [Concomitant]
     Active Substance: AMIODARONE HYDROCHLORIDE
     Dosage: 200 MG, QD
     Route: 048
     Dates: start: 2015, end: 20211219
  21. METFORMIN HYDROCHLORIDE [Concomitant]
     Active Substance: METFORMIN HYDROCHLORIDE
     Indication: Diabetes mellitus
     Dosage: UNK, 1 IN 3 D
     Route: 048
     Dates: start: 2016, end: 20210824
  22. ASPIRIN [Concomitant]
     Active Substance: ASPIRIN
     Dosage: 100 MG, QD
     Route: 048
     Dates: start: 20210908, end: 20211101
  23. ASPIRIN DL-LYSINE [Concomitant]
     Active Substance: ASPIRIN DL-LYSINE
     Dosage: 160 UNK, QD
     Route: 048
     Dates: start: 20211102, end: 20211219
  24. KEYTRUDA [Concomitant]
     Active Substance: PEMBROLIZUMAB
     Dosage: 200 MG
     Dates: start: 20210301, end: 20210503
  25. AXITINIB [Concomitant]
     Active Substance: AXITINIB
     Dosage: 5 MG
     Dates: start: 20210301, end: 20210503
  26. PANTOPRAZOLE [Concomitant]
     Active Substance: PANTOPRAZOLE
     Indication: Gastrointestinal disorder prophylaxis
     Dosage: 20 MG, QD
     Route: 048
     Dates: start: 20220524
  27. CANRENONE [Concomitant]
     Active Substance: CANRENONE
     Indication: Diuretic therapy
     Dosage: 50 MG
     Route: 048
     Dates: start: 20220524, end: 20220901
  28. FUROSEMIDE [Concomitant]
     Active Substance: FUROSEMIDE
     Indication: Diuretic therapy
     Dosage: 25 MG, QD
     Route: 048
     Dates: start: 20220524, end: 20220901
  29. Acetilsalysilic acid 5%+ urea 10% [Concomitant]
  30. ASPIRIN [Concomitant]
     Active Substance: ASPIRIN
     Dosage: 100 MG, QD
     Route: 048
     Dates: start: 2011

REACTIONS (1)
  - Acute myocardial infarction [Recovered/Resolved]

NARRATIVE: CASE EVENT DATE: 20220517
